FAERS Safety Report 4971183-X (Version None)
Quarter: 2006Q1

REPORT INFORMATION
  Report Type: 
  Country: None (occurrence: None)
  Receive Date: 20060216
  Receipt Date: 20030625
  Transmission Date: 20060701
  Serious: Yes (Other)
  Sender: FDA-Public Use
  Company Number: 2003IM000644

PATIENT
  Age: 59 Year
  Sex: Female
  Weight: 52 kg

DRUGS (7)
  1. INTERFERON GAMMA-1B [Suspect]
     Indication: OVARIAN CANCER
     Dosage: 100 MG, TIW, SUBCUTANEOUS
     Route: 058
     Dates: start: 20030404, end: 20030422
  2. CARBOPLATIN [Suspect]
     Indication: OVARIAN CANCER
     Dosage: 731 MG, Q3W, INTRAVENOUS
     Route: 042
     Dates: start: 20030402, end: 20030422
  3. PACLITAXEL [Suspect]
     Indication: OVARIAN CANCER
     Dosage: 270 MG, Q3W, INTRAVENOUS
     Route: 042
     Dates: start: 20030402, end: 20030422
  4. XANAX [Concomitant]
  5. ENSURE [Concomitant]
  6. NORMISON [Concomitant]
  7. MARILASE [Concomitant]

REACTIONS (1)
  - FEBRILE NEUTROPENIA [None]
